FAERS Safety Report 21762223 (Version 1)
Quarter: 2022Q4

REPORT INFORMATION
  Report Type: Spontaneous
  Country: US (occurrence: US)
  Receive Date: 20221221
  Receipt Date: 20221221
  Transmission Date: 20230113
  Serious: No
  Sender: FDA-Public Use
  Company Number: US-CORIUM, INC.-2022COR000184

PATIENT

DRUGS (2)
  1. AZSTARYS [Suspect]
     Active Substance: DEXMETHYLPHENIDATE HYDROCHLORIDE\SERDEXMETHYLPHENIDATE CHLORIDE
     Indication: Attention deficit hyperactivity disorder
     Dosage: 26.1MG/5.2MG
     Route: 048
     Dates: start: 20220824, end: 20221113
  2. AZSTARYS [Suspect]
     Active Substance: DEXMETHYLPHENIDATE HYDROCHLORIDE\SERDEXMETHYLPHENIDATE CHLORIDE
     Dosage: 39.2MG/7.8MG
     Route: 048
     Dates: start: 20221028

REACTIONS (2)
  - Flushing [None]
  - Therapeutic response shortened [Unknown]

NARRATIVE: CASE EVENT DATE: 20221107
